FAERS Safety Report 20112692 (Version 2)
Quarter: 2021Q4

REPORT INFORMATION
  Report Type: Spontaneous
  Country: US (occurrence: US)
  Receive Date: 20211125
  Receipt Date: 20211125
  Transmission Date: 20220304
  Serious: Yes (Other)
  Sender: FDA-Public Use
  Company Number: US-GILEAD-2021-0556314

PATIENT

DRUGS (5)
  1. VIREAD [Suspect]
     Active Substance: TENOFOVIR DISOPROXIL FUMARATE
     Indication: Product used for unknown indication
     Route: 065
  2. REYATAZ [Concomitant]
     Active Substance: ATAZANAVIR SULFATE
  3. NORVIR [Concomitant]
     Active Substance: RITONAVIR
  4. VIRAMUNE [Concomitant]
     Active Substance: NEVIRAPINE
  5. LAMIVUDINE [Concomitant]
     Active Substance: LAMIVUDINE

REACTIONS (3)
  - Osteoporosis [Unknown]
  - Drug resistance [Unknown]
  - Osteopenia [Unknown]
